FAERS Safety Report 17959671 (Version 2)
Quarter: 2020Q3

REPORT INFORMATION
  Report Type: Spontaneous
  Country: KZ (occurrence: KZ)
  Receive Date: 20200629
  Receipt Date: 20200807
  Transmission Date: 20201103
  Serious: Yes (Hospitalization, Other)
  Sender: FDA-Public Use
  Company Number: KZ-ABBVIE-20P-230-3457732-00

PATIENT
  Age: 74 Year
  Sex: Female
  Weight: 78 kg

DRUGS (6)
  1. LORATADINUM [Concomitant]
     Indication: COVID-19
     Dates: start: 20200419, end: 20200422
  2. KALETRA [Suspect]
     Active Substance: LOPINAVIR\RITONAVIR
     Indication: COVID-19
     Dosage: 400/100 MG
     Route: 048
     Dates: start: 20200417, end: 20200421
  3. LIDOCAINUM [Concomitant]
     Indication: COVID-19
     Dates: start: 20200420, end: 20200421
  4. AMBROXOL [Concomitant]
     Active Substance: AMBROXOL
     Indication: COVID-19
     Dates: start: 20200417, end: 20200502
  5. PERINDOPRIL [Concomitant]
     Active Substance: PERINDOPRIL
     Indication: HYPERTENSION
  6. CEFTRIAXONE. [Concomitant]
     Active Substance: CEFTRIAXONE
     Indication: COVID-19
     Dates: start: 20200420, end: 20200429

REACTIONS (4)
  - Sinus arrest [Recovered/Resolved]
  - Nodal rhythm [Recovered/Resolved]
  - Off label use [Recovered/Resolved]
  - Toxicity to various agents [Recovered/Resolved]

NARRATIVE: CASE EVENT DATE: 20200417
